FAERS Safety Report 5406569-2 (Version None)
Quarter: 2007Q3

REPORT INFORMATION
  Report Type: 
  Country: None (occurrence: None)
  Receive Date: 20070806
  Receipt Date: 20070720
  Transmission Date: 20080115
  Serious: Yes (Hospitalization, Other)
  Sender: FDA-Public Use
  Company Number: JP-PFIZER INC-2007063962

PATIENT
  Age: 40 Year
  Sex: Female

DRUGS (3)
  1. HYSRON-H200 [Suspect]
     Indication: BREAST CANCER RECURRENT
     Route: 048
  2. ZOLADEX [Suspect]
     Indication: BREAST CANCER RECURRENT
     Route: 058
     Dates: start: 20040101, end: 20050401
  3. TAMOXIFEN CITRATE [Suspect]
     Indication: BREAST CANCER RECURRENT
     Route: 048
     Dates: start: 20040101, end: 20050401

REACTIONS (1)
  - ACUTE PROMYELOCYTIC LEUKAEMIA [None]
